FAERS Safety Report 8056843-9 (Version None)
Quarter: 2012Q1

REPORT INFORMATION
  Report Type: 
  Country: None (occurrence: None)
  Receive Date: 20120119
  Receipt Date: 20110629
  Transmission Date: 20120608
  Serious: No
  Sender: FDA-Public Use
  Company Number: US-SANOFI-AVENTIS-2011SA041760

PATIENT
  Age: 43 Year
  Sex: Male

DRUGS (3)
  1. VALSARTAN [Suspect]
     Indication: BLOOD PRESSURE INCREASED
     Route: 065
  2. LASIX [Suspect]
     Indication: BLOOD PRESSURE INCREASED
     Route: 065
  3. METOPROLOL TARTRATE [Suspect]
     Indication: BLOOD PRESSURE INCREASED
     Route: 065

REACTIONS (3)
  - DRUG INEFFECTIVE [None]
  - OEDEMA PERIPHERAL [None]
  - DIZZINESS [None]
